FAERS Safety Report 5729622-2 (Version None)
Quarter: 2008Q2

REPORT INFORMATION
  Report Type: 
  Country: None (occurrence: None)
  Receive Date: 20080501
  Receipt Date: 20080424
  Transmission Date: 20081010
  Serious: Yes (Death, Other)
  Sender: FDA-Public Use
  Company Number: 2008SP007815

PATIENT
  Age: 57 Year
  Sex: Female

DRUGS (1)
  1. TEMODAL [Suspect]
     Indication: GLIOBLASTOMA

REACTIONS (3)
  - DISEASE PROGRESSION [None]
  - FEBRILE BONE MARROW APLASIA [None]
  - THROMBOCYTOPENIA [None]
